FAERS Safety Report 7237702-8 (Version None)
Quarter: 2011Q1

REPORT INFORMATION
  Report Type: 
  Country: None (occurrence: None)
  Receive Date: 20110121
  Receipt Date: 20110113
  Transmission Date: 20110831
  Serious: Yes (Other)
  Sender: FDA-Public Use
  Company Number: PHHY2010JP78785

PATIENT
  Sex: Female

DRUGS (3)
  1. ZOMETA [Suspect]
     Indication: METASTASES TO BONE
     Dosage: 4 MG, QMO
     Route: 041
     Dates: start: 20060901, end: 20080101
  2. AREDIA [Suspect]
     Indication: METASTASES TO BONE
     Dosage: 90 MG, QMO
     Route: 041
     Dates: start: 20060201, end: 20060801
  3. RADIOTHERAPY [Concomitant]

REACTIONS (5)
  - ORAL CAVITY FISTULA [None]
  - PURULENT DISCHARGE [None]
  - IMPAIRED HEALING [None]
  - OSTEONECROSIS OF JAW [None]
  - GINGIVAL BLEEDING [None]
